FAERS Safety Report 6018988-4 (Version None)
Quarter: 2008Q4

REPORT INFORMATION
  Report Type: 
  Country: None (occurrence: None)
  Receive Date: 20081224
  Receipt Date: 20081217
  Transmission Date: 20090506
  Serious: Yes (Hospitalization)
  Sender: FDA-Public Use
  Company Number: JP-BRISTOL-MYERS SQUIBB COMPANY-14449730

PATIENT
  Age: 5 Decade
  Sex: Female

DRUGS (4)
  1. PARAPLATIN [Suspect]
     Indication: UTERINE CANCER
     Route: 041
  2. TAXOTERE [Suspect]
     Indication: UTERINE CANCER
     Route: 042
  3. DECADRON [Concomitant]
     Route: 048
  4. TAMOXIFEN CITRATE [Concomitant]
     Route: 048

REACTIONS (1)
  - RHABDOMYOLYSIS [None]
